FAERS Safety Report 23136114 (Version 3)
Quarter: 2023Q4

REPORT INFORMATION
  Report Type: Spontaneous
  Country: US (occurrence: US)
  Receive Date: 20231102
  Receipt Date: 20231208
  Transmission Date: 20240110
  Serious: No
  Sender: FDA-Public Use
  Company Number: US-ALXN-A202314130

PATIENT

DRUGS (1)
  1. STRENSIQ [Suspect]
     Active Substance: ASFOTASE ALFA
     Indication: Hypophosphatasia
     Dosage: UNK
     Route: 065

REACTIONS (6)
  - Arthropathy [Unknown]
  - Serum sickness [Unknown]
  - Urticaria [Unknown]
  - Pyrexia [Unknown]
  - Injection site pruritus [Unknown]
  - Injection site pain [Unknown]
